FAERS Safety Report 7272888-0 (Version None)
Quarter: 2011Q1

REPORT INFORMATION
  Report Type: 
  Country: None (occurrence: None)
  Receive Date: 20110203
  Receipt Date: 20110119
  Transmission Date: 20110831
  Serious: No
  Sender: FDA-Public Use
  Company Number: CO-PFIZER INC-2010159988

PATIENT
  Age: 91 Year
  Sex: Female

DRUGS (1)
  1. XALATAN [Suspect]
     Indication: GLAUCOMA
     Dosage: 1 DROP, EACH EYE, AT NIGHT
     Route: 047
     Dates: start: 20100831

REACTIONS (3)
  - PAIN [None]
  - HYPERSENSITIVITY [None]
  - OCULAR HYPERAEMIA [None]
